FAERS Safety Report 12681620 (Version 1)
Quarter: 2016Q3

REPORT INFORMATION
  Report Type: Report from Study
  Country: BR (occurrence: BR)
  Receive Date: 20160824
  Receipt Date: 20160824
  Transmission Date: 20161109
  Serious: Yes (Other)
  Sender: FDA-Public Use
  Company Number: BR-ABBVIE-16K-020-1703239-00

PATIENT
  Age: 57 Year
  Sex: Female
  Weight: 59 kg

DRUGS (2)
  1. HUMIRA [Suspect]
     Active Substance: ADALIMUMAB
     Indication: RHEUMATOID ARTHRITIS
     Route: 058
     Dates: start: 20140807
  2. ARAVA [Concomitant]
     Active Substance: LEFLUNOMIDE
     Indication: ARTHRITIS
     Route: 048
     Dates: start: 2010

REACTIONS (15)
  - Nodule [Not Recovered/Not Resolved]
  - Dry mouth [Not Recovered/Not Resolved]
  - Epistaxis [Recovering/Resolving]
  - Pharyngeal disorder [Recovering/Resolving]
  - Tongue dry [Not Recovered/Not Resolved]
  - Sinusitis [Recovered/Resolved]
  - Pruritus [Not Recovered/Not Resolved]
  - Hiatus hernia [Not Recovered/Not Resolved]
  - Tooth fracture [Not Recovered/Not Resolved]
  - Gastritis [Not Recovered/Not Resolved]
  - Headache [Recovering/Resolving]
  - Gastrooesophageal reflux disease [Recovering/Resolving]
  - Mouth injury [Not Recovered/Not Resolved]
  - Nodule [Recovered/Resolved]
  - Influenza [Recovering/Resolving]

NARRATIVE: CASE EVENT DATE: 2014
